FAERS Safety Report 10040893 (Version 2)
Quarter: 2014Q2

REPORT INFORMATION
  Report Type: Spontaneous
  Country: US (occurrence: US)
  Receive Date: 20140327
  Receipt Date: 20140501
  Transmission Date: 20141212
  Serious: No
  Sender: FDA-Public Use
  Company Number: US-PFIZER INC-2014083355

PATIENT
  Age: 31 Year
  Sex: Female
  Weight: 68.03 kg

DRUGS (2)
  1. LYRICA [Suspect]
     Indication: FIBROMYALGIA
     Dosage: 300 MG, DAILY
     Dates: start: 201309
  2. LAMICTAL [Concomitant]
     Indication: FIBROMYALGIA
     Dosage: 100 MG, DAILY

REACTIONS (4)
  - Hypersomnia [Unknown]
  - Dysaesthesia [Unknown]
  - Somnolence [Unknown]
  - Poor quality sleep [Unknown]
